FAERS Safety Report 9352753 (Version 1)
Quarter: 2013Q2

REPORT INFORMATION
  Report Type: Spontaneous
  Country: US (occurrence: None)
  Receive Date: 20130614
  Receipt Date: 20130614
  Transmission Date: 20140414
  Serious: Yes (Other)
  Sender: FDA-Public Use
  Company Number: None

PATIENT
  Age: 41 Year
  Sex: 0

DRUGS (1)
  1. LEVAQUIN [Suspect]
     Dosage: 1
     Route: 048
     Dates: start: 20130603, end: 20130605

REACTIONS (3)
  - Pain in extremity [None]
  - Tendon disorder [None]
  - Abasia [None]
